FAERS Safety Report 5527258-X (Version None)
Quarter: 2007Q4

REPORT INFORMATION
  Report Type: 
  Country: None (occurrence: None)
  Receive Date: 20071128
  Receipt Date: 20071116
  Transmission Date: 20080405
  Serious: Yes (Other)
  Sender: FDA-Public Use
  Company Number: A0688739A

PATIENT
  Sex: Female

DRUGS (8)
  1. LAMICTAL [Suspect]
     Indication: BIPOLAR DISORDER
     Route: 065
  2. TIKOSYN [Suspect]
     Indication: ATRIAL FIBRILLATION
  3. DIAVAN [Concomitant]
  4. TOPROL-XL [Concomitant]
  5. LISINOPRIL [Concomitant]
  6. EFFEXOR [Concomitant]
  7. NEXIUM [Concomitant]
  8. XANAX [Concomitant]

REACTIONS (13)
  - ANGER [None]
  - ANXIETY [None]
  - ASTHENIA [None]
  - ATRIAL FIBRILLATION [None]
  - BLOOD PRESSURE INCREASED [None]
  - DRUG INTERACTION [None]
  - FEELING ABNORMAL [None]
  - HEART RATE IRREGULAR [None]
  - HYPERTENSION [None]
  - INSOMNIA [None]
  - LYMPHADENOPATHY [None]
  - PYREXIA [None]
  - STRESS [None]
